FAERS Safety Report 6409895-3 (Version None)
Quarter: 2009Q4

REPORT INFORMATION
  Report Type: 
  Country: None (occurrence: None)
  Receive Date: 20091022
  Receipt Date: 20091013
  Transmission Date: 20100525
  Serious: Yes (Hospitalization)
  Sender: FDA-Public Use
  Company Number: SE-ASTRAZENECA-2009SE19972

PATIENT
  Age: 109 Year
  Sex: Male

DRUGS (1)
  1. OMEPRAZOLE [Suspect]
     Indication: GASTRITIS
     Route: 048
     Dates: start: 20090611, end: 20090620

REACTIONS (4)
  - ARTHRALGIA [None]
  - JOINT SWELLING [None]
  - PRURITUS [None]
  - RASH [None]
